FAERS Safety Report 8966156 (Version 1)
Quarter: 2012Q4

REPORT INFORMATION
  Report Type: Spontaneous
  Country: US (occurrence: None)
  Receive Date: 20121204
  Receipt Date: 20121204
  Transmission Date: 20130627
  Serious: Yes (Other)
  Sender: FDA-Public Use
  Company Number: 2012P1065619

PATIENT
  Age: 67 Year
  Sex: Female

DRUGS (17)
  1. REGLAN INJECTION 10MG/ 2ML VIAL (NO PREF. NAME) [Suspect]
     Indication: TYPE 2 DIABETES MELLITUS
     Dosage: 09/--/2012 - UNKNOWN
     Dates: start: 201209
  2. SAXAGLIPTIN (NO PREF. NAME) [Suspect]
     Dosage: 10/19/2010 - UNKNOWN
     Dates: start: 20101019
  3. NOVOLOG [Suspect]
     Dosage: UNKNOWN -  02/01/2011
     Dates: end: 20110201
  4. NOVOLOG [Suspect]
     Dosage: 02/05/2011 - 04/07/2011
     Dates: start: 20110205, end: 20110307
  5. NOVOLOG [Suspect]
     Dosage: 07/21/2011 - PRESENT
     Dates: start: 20110308
  6. LANTUS [Suspect]
     Dosage: 180 IU;  1 DOSAGE FORM
UNKNOWN - 02/02/2011
     Dates: end: 20110202
  7. LANTUS [Suspect]
     Dosage: 02/28/2011 - 07/20/2011
     Dates: start: 20110228, end: 20110720
  8. LANTUS [Suspect]
     Dosage: 07/21/2011 - PRESENT
     Dates: start: 20110721
  9. PLACEBO [Suspect]
     Dosage: 10/19/2010 - UNKNOWN
     Dates: start: 20101019
  10. ASPIRIN (ACETYLSALICYCLIC ACID) [Concomitant]
  11. NIACIN [Concomitant]
  12. BETA BLOCKERS, NOS [Concomitant]
  13. STATIN [Concomitant]
  14. FIBRIC ACID [Concomitant]
  15. ANGIOTENSIN CONVERTING ENZYME INHIBITOR [Concomitant]
  16. DIURETICS [Concomitant]
  17. NITRATES [Concomitant]

REACTIONS (8)
  - Diabetic gastroparesis [None]
  - Condition aggravated [None]
  - Hypophagia [None]
  - White blood cell count increased [None]
  - Haemoglobin decreased [None]
  - Blood sodium decreased [None]
  - Blood potassium decreased [None]
  - Pain [None]
